FAERS Safety Report 7933921-3 (Version None)
Quarter: 2011Q4

REPORT INFORMATION
  Report Type: 
  Country: None (occurrence: None)
  Receive Date: 20111122
  Receipt Date: 20111121
  Transmission Date: 20120403
  Serious: Yes (Hospitalization)
  Sender: FDA-Public Use
  Company Number: FR-EISAI INC-E2090-01862-SPO-FR

PATIENT
  Sex: Male

DRUGS (13)
  1. ZONEGRAN [Suspect]
     Route: 048
     Dates: start: 20110109, end: 20110112
  2. AMOXICILLIN AND CLAVULANATE POTASSIUM [Suspect]
     Route: 048
     Dates: start: 20110109, end: 20110112
  3. DEPAKENE [Concomitant]
     Route: 048
  4. TERCIAN [Concomitant]
  5. KEPPRA [Concomitant]
     Route: 048
  6. ROCEPHIN [Concomitant]
  7. ACYCLOVIR [Suspect]
     Dosage: 2850 MG
     Route: 042
     Dates: start: 20110109, end: 20110111
  8. ATARAX [Concomitant]
     Route: 048
  9. URBANYL [Concomitant]
     Route: 048
  10. POTASSIUM CHLORIDE [Concomitant]
  11. RISPERIDONE [Concomitant]
  12. POLARAMINE [Concomitant]
  13. XYZAL [Concomitant]

REACTIONS (1)
  - DRUG RASH WITH EOSINOPHILIA AND SYSTEMIC SYMPTOMS [None]
